FAERS Safety Report 19276234 (Version 2)
Quarter: 2021Q2

REPORT INFORMATION
  Report Type: Spontaneous
  Country: NL (occurrence: NL)
  Receive Date: 20210520
  Receipt Date: 20210525
  Transmission Date: 20210717
  Serious: Yes (Other)
  Sender: FDA-Public Use
  Company Number: NL-AUROBINDO-AUR-APL-2021-020287

PATIENT

DRUGS (4)
  1. ERENUMAB [Suspect]
     Active Substance: ERENUMAB
     Indication: MIGRAINE PROPHYLAXIS
     Dosage: UNK
     Route: 058
  2. ERENUMAB [Suspect]
     Active Substance: ERENUMAB
     Indication: MIGRAINE
  3. ZOLMITRIPTAN. [Suspect]
     Active Substance: ZOLMITRIPTAN
     Indication: MIGRAINE PROPHYLAXIS
     Dosage: UNK
     Route: 065
  4. ZOLMITRIPTAN. [Suspect]
     Active Substance: ZOLMITRIPTAN
     Indication: MIGRAINE

REACTIONS (2)
  - Acute coronary syndrome [Unknown]
  - Cardiac disorder [Unknown]
